FAERS Safety Report 11912627 (Version 2)
Quarter: 2016Q2

REPORT INFORMATION
  Report Type: Report from Study
  Country: US (occurrence: US)
  Receive Date: 20160113
  Receipt Date: 20160525
  Transmission Date: 20160815
  Serious: Yes (Death, Other)
  Sender: FDA-Public Use
  Company Number: US-009507513-1510USA012298

PATIENT
  Age: 74 Year
  Sex: Female
  Weight: 47.5 kg

DRUGS (2)
  1. PEMBROLIZUMAB. [Suspect]
     Active Substance: PEMBROLIZUMAB
     Indication: LUNG ADENOCARCINOMA METASTATIC
     Dosage: UNK, Q3W
     Route: 042
     Dates: start: 20141121, end: 20150212
  2. PF-05082566 [Suspect]
     Active Substance: INVESTIGATIONAL PRODUCT
     Indication: LUNG ADENOCARCINOMA METASTATIC
     Dosage: UNK, Q3W
     Route: 042
     Dates: start: 20141121, end: 20150212

REACTIONS (2)
  - Disease progression [Fatal]
  - Lung adenocarcinoma metastatic [Fatal]

NARRATIVE: CASE EVENT DATE: 20150415
